FAERS Safety Report 5447738-5 (Version None)
Quarter: 2007Q3

REPORT INFORMATION
  Report Type: 
  Country: None (occurrence: None)
  Receive Date: 20070910
  Receipt Date: 20070831
  Transmission Date: 20080115
  Serious: Yes (Hospitalization)
  Sender: FDA-Public Use
  Company Number: DE-ELI_LILLY_AND_COMPANY-DE200707003166

PATIENT
  Age: 50 Year
  Sex: Female

DRUGS (1)
  1. FORTEO [Suspect]
     Indication: OSTEOPOROSIS
     Dosage: UNK, UNKNOWN
     Route: 058
     Dates: start: 20070629

REACTIONS (7)
  - BLOOD CALCIUM INCREASED [None]
  - GASTROINTESTINAL DISORDER [None]
  - NAUSEA [None]
  - NEPHROLITHIASIS [None]
  - PRURITUS [None]
  - RENAL COLIC [None]
  - VOMITING [None]
